FAERS Safety Report 6941958-6 (Version None)
Quarter: 2010Q3

REPORT INFORMATION
  Report Type: 
  Country: None (occurrence: None)
  Receive Date: 20100826
  Receipt Date: 20100817
  Transmission Date: 20110219
  Serious: Yes (Hospitalization)
  Sender: FDA-Public Use
  Company Number: JP-JNJFOC-20100804078

PATIENT
  Sex: Female
  Weight: 39 kg

DRUGS (8)
  1. GOLIMUMAB [Suspect]
     Indication: RHEUMATOID ARTHRITIS
     Route: 058
  2. GOLIMUMAB [Suspect]
     Route: 058
  3. METHOTREXATE [Concomitant]
     Indication: RHEUMATOID ARTHRITIS
     Route: 048
  4. FOLIAMIN [Concomitant]
     Indication: PROPHYLAXIS
     Route: 048
  5. ALANTA SP [Concomitant]
     Indication: PROPHYLAXIS
     Route: 048
  6. WARFARIN SODIUM [Concomitant]
     Indication: PROPHYLAXIS
     Route: 048
  7. DIGOXIN [Concomitant]
     Indication: PROPHYLAXIS
     Route: 048
  8. ARTIST [Concomitant]
     Indication: PROPHYLAXIS
     Route: 048

REACTIONS (1)
  - CARDIAC FAILURE CONGESTIVE [None]
